FAERS Safety Report 8887541 (Version 1)
Quarter: 2012Q4

REPORT INFORMATION
  Report Type: Spontaneous
  Country: FR (occurrence: None)
  Receive Date: 20121031
  Receipt Date: 20121031
  Transmission Date: 20130627
  Serious: Yes (Hospitalization)
  Sender: FDA-Public Use
  Company Number: NSR_00706_2012

PATIENT
  Age: 50 Year
  Sex: Female

DRUGS (2)
  1. BACLOFEN [Suspect]
     Dosage: 1800 mg 1x, (not the presecribed dose))
  2. BACLOFEN [Suspect]
     Dates: end: 2004

REACTIONS (6)
  - Intentional overdose [None]
  - Coma [None]
  - Bradypnoea [None]
  - Oxygen saturation decreased [None]
  - Hypotension [None]
  - Bradycardia [None]
